FAERS Safety Report 9314177 (Version 2)
Quarter: 2013Q3

REPORT INFORMATION
  Report Type: Report from Study
  Country: FR (occurrence: FR)
  Receive Date: 20130529
  Receipt Date: 20130705
  Transmission Date: 20140515
  Serious: Yes (Death)
  Sender: FDA-Public Use
  Company Number: FR-ACCORD-017813

PATIENT
  Age: 82 Year
  Sex: 0

DRUGS (2)
  1. MYCOPHENOLATE MOFETIL [Suspect]
     Indication: PEMPHIGOID
  2. CLOBETASOL PROPIONATE [Suspect]
     Indication: PEMPHIGOID
     Dosage: TOPICAL CLOBETASOL PROPIONATE

REACTIONS (2)
  - Necrotising fasciitis [Fatal]
  - Off label use [Unknown]
